FAERS Safety Report 4522184-7 (Version None)
Quarter: 2004Q4

REPORT INFORMATION
  Report Type: 
  Country: None (occurrence: None)
  Receive Date: 20041207
  Receipt Date: 20041124
  Transmission Date: 20050328
  Serious: Yes (Other)
  Sender: FDA-Public Use
  Company Number: 2004100027

PATIENT

DRUGS (2)
  1. TIKOSYN [Suspect]
     Indication: ILL-DEFINED DISORDER
     Dosage: 1000 MCG (500 MCG, 2 IN 1 D), ORAL
     Route: 048
  2. PAROXETINE HCL [Concomitant]

REACTIONS (3)
  - CREATININE RENAL CLEARANCE DECREASED [None]
  - NAUSEA [None]
  - RENAL MASS [None]
